FAERS Safety Report 4950236-6 (Version None)
Quarter: 2006Q1

REPORT INFORMATION
  Report Type: 
  Country: None (occurrence: None)
  Receive Date: 20060322
  Receipt Date: 20060313
  Transmission Date: 20060701
  Serious: Yes (Hospitalization)
  Sender: FDA-Public Use
  Company Number: US-JNJFOC-20030904433

PATIENT
  Sex: Female
  Weight: 86.64 kg

DRUGS (10)
  1. RISPERDAL [Suspect]
     Route: 048
  2. RISPERDAL [Suspect]
     Indication: BIPOLAR DISORDER
     Route: 048
  3. ALBUTEROL [Concomitant]
     Dosage: AS NEEDED
     Route: 055
  4. DOXEPIN [Concomitant]
     Dosage: 1 IN THE MORNING AND 2 AT NIGHT
     Route: 065
  5. EFFEXOR XR [Concomitant]
     Route: 065
  6. DARVOCET-N 100 [Concomitant]
     Route: 065
  7. DARVOCET-N 100 [Concomitant]
     Dosage: AS NEEDED
     Route: 065
  8. NAPROXEN [Concomitant]
  9. ADVAIR DISKUS 100/50 [Concomitant]
  10. ADVAIR DISKUS 100/50 [Concomitant]

REACTIONS (13)
  - ABDOMINAL HERNIA [None]
  - ASTHMA [None]
  - BALANCE DISORDER [None]
  - CATARACT OPERATION [None]
  - CONFUSIONAL STATE [None]
  - CONVULSION [None]
  - DYSPHAGIA [None]
  - MUSCLE SPASMS [None]
  - MUSCULOSKELETAL STIFFNESS [None]
  - PAIN IN EXTREMITY [None]
  - RHEUMATOID ARTHRITIS [None]
  - TARDIVE DYSKINESIA [None]
  - TREMOR [None]
